FAERS Safety Report 8761894 (Version 3)
Quarter: 2013Q3

REPORT INFORMATION
  Report Type: Report from Study
  Country: JP (occurrence: JP)
  Receive Date: 20120830
  Receipt Date: 20130905
  Transmission Date: 20140515
  Serious: Yes (Other)
  Sender: FDA-Public Use
  Company Number: JP-VERTEX PHARMACEUTICAL INC.-2012-020254

PATIENT
  Age: 50 Year
  Sex: Female

DRUGS (14)
  1. VX-950 (TELAPREVIR) [Suspect]
     Indication: CHRONIC HEPATITIS C
     Dosage: 2250 MG, QD
     Route: 048
     Dates: start: 20120516, end: 20120626
  2. VX-950 (TELAPREVIR) [Suspect]
     Dosage: 1500 MG, QD
     Route: 048
     Dates: start: 20120627, end: 20120807
  3. REBETOL [Suspect]
     Indication: CHRONIC HEPATITIS C
     Dosage: 600 MG, QD
     Route: 048
     Dates: start: 20120516, end: 20120626
  4. REBETOL [Suspect]
     Dosage: 400 MG, QD
     Route: 048
     Dates: start: 20120627, end: 20120705
  5. REBETOL [Suspect]
     Dosage: 200 MG, QD
     Route: 048
     Dates: start: 20120706
  6. PEGINTERFERON ALFA-2B [Concomitant]
     Indication: CHRONIC HEPATITIS C
     Dosage: 1.5 ?G/KG, QW
     Route: 058
     Dates: start: 20120516
  7. OLMETEC [Concomitant]
     Dosage: 10 MG, QD
     Route: 048
  8. ATELEC [Concomitant]
     Dosage: 10 MG, QD
     Route: 048
  9. MAINTATE [Concomitant]
     Dosage: 2.5 MG, QD
     Route: 048
  10. GASTER D [Concomitant]
     Dosage: 2 DF, QD
     Route: 048
     Dates: start: 20120516
  11. GASTER D [Concomitant]
     Dosage: 40 MG, QD
     Route: 048
  12. NABOAL SR [Concomitant]
     Dosage: 2 DF, QD
     Route: 048
     Dates: start: 20120516, end: 20120522
  13. BIO-THREE [Concomitant]
     Dosage: 3 DF, QD
     Route: 048
     Dates: start: 20120518
  14. VOLTAREN [Concomitant]
     Dosage: UNK, PRN
     Route: 048
     Dates: start: 20120606

REACTIONS (1)
  - White blood cell count decreased [Recovered/Resolved]
